FAERS Safety Report 13984135 (Version 1)
Quarter: 2017Q3

REPORT INFORMATION
  Report Type: Spontaneous
  Country: BD (occurrence: BD)
  Receive Date: 20170918
  Receipt Date: 20170918
  Transmission Date: 20171128
  Serious: Yes (Death, Hospitalization, Other)
  Sender: FDA-Public Use
  Company Number: BD-ALLERGAN-1752466US

PATIENT
  Age: 27 Year
  Sex: Female

DRUGS (3)
  1. DAPSONE UNK [Suspect]
     Active Substance: DAPSONE
     Indication: LEPROMATOUS LEPROSY
     Route: 065
  2. CLOFAZIMINE [Suspect]
     Active Substance: CLOFAZIMINE
     Indication: LEPROMATOUS LEPROSY
     Route: 065
  3. RIFAMPICIN [Suspect]
     Active Substance: RIFAMPIN
     Indication: LEPROMATOUS LEPROSY
     Route: 065

REACTIONS (13)
  - Ileus [Unknown]
  - Meningitis [Unknown]
  - Type 2 lepra reaction [Unknown]
  - Off label use [Unknown]
  - Abdominal pain upper [Unknown]
  - Lung disorder [Unknown]
  - Diarrhoea [Unknown]
  - Strongyloidiasis [Unknown]
  - Death [Fatal]
  - Multiple organ dysfunction syndrome [Fatal]
  - Headache [Unknown]
  - Dyspnoea [Unknown]
  - Constipation [Unknown]
